FAERS Safety Report 25710970 (Version 2)
Quarter: 2025Q4

REPORT INFORMATION
  Report Type: Spontaneous
  Country: US (occurrence: US)
  Receive Date: 20250821
  Receipt Date: 20251015
  Transmission Date: 20260117
  Serious: No
  Sender: LUPIN
  Company Number: US-LUPIN PHARMACEUTICALS INC.-2025-07374

PATIENT

DRUGS (1)
  1. ALBUTEROL SULFATE [Suspect]
     Active Substance: ALBUTEROL SULFATE
     Indication: Chronic obstructive pulmonary disease
     Dosage: QID, 2 PUFFS EVERY SIX HOURS

REACTIONS (4)
  - Product preparation error [Unknown]
  - Device use error [Unknown]
  - Device delivery system issue [Unknown]
  - Off label use [Unknown]
